FAERS Safety Report 18654581 (Version 1)
Quarter: 2020Q4

REPORT INFORMATION
  Report Type: Spontaneous
  Country: US (occurrence: US)
  Receive Date: 20201223
  Receipt Date: 20201223
  Transmission Date: 20210114
  Serious: Yes (Hospitalization)
  Sender: FDA-Public Use
  Company Number: None

PATIENT
  Age: 66 Year
  Sex: Male
  Weight: 60.5 kg

DRUGS (3)
  1. BACTRIM DS [Concomitant]
     Active Substance: SULFAMETHOXAZOLE\TRIMETHOPRIM
  2. GENVOYA [Suspect]
     Active Substance: COBICISTAT\ELVITEGRAVIR\EMTRICITABINE\TENOFOVIR ALAFENAMIDE FUMARATE
     Indication: HIV TEST POSITIVE
     Route: 048
     Dates: start: 20190624, end: 20201127
  3. OMEPRAZOLE 20 [Concomitant]

REACTIONS (7)
  - Asthenia [None]
  - Feeling abnormal [None]
  - Fatigue [None]
  - Dyspnoea [None]
  - Transfusion [None]
  - Pancytopenia [None]
  - Melaena [None]

NARRATIVE: CASE EVENT DATE: 20201126
